FAERS Safety Report 7757510-9 (Version None)
Quarter: 2011Q3

REPORT INFORMATION
  Report Type: 
  Country: None (occurrence: None)
  Receive Date: 20110916
  Receipt Date: 20110906
  Transmission Date: 20111222
  Serious: Yes (Other)
  Sender: FDA-Public Use
  Company Number: US-BRISTOL-MYERS SQUIBB COMPANY-16056335

PATIENT
  Age: 36 Year
  Sex: Male

DRUGS (1)
  1. POTASSIUM CHLORIDE [Suspect]
     Dosage: SLOW-RELEASE

REACTIONS (4)
  - OVERDOSE [None]
  - VENTRICULAR TACHYCARDIA [None]
  - ELECTROCARDIOGRAM ABNORMAL [None]
  - BLOOD POTASSIUM INCREASED [None]
